FAERS Safety Report 8087738-2 (Version None)
Quarter: 2012Q1

REPORT INFORMATION
  Report Type: 
  Country: None (occurrence: None)
  Receive Date: 20120128
  Receipt Date: 20110525
  Transmission Date: 20120608
  Serious: No
  Sender: FDA-Public Use
  Company Number: US-ABBOTT-11P-163-0728719-00

PATIENT
  Sex: Female

DRUGS (8)
  1. HYDROTHIAZIDE [Concomitant]
     Indication: HYPERTENSION
     Route: 048
  2. MULTI-VITAMINS [Concomitant]
     Indication: VITAMIN SUPPLEMENTATION
     Route: 048
  3. FLAX SEED [Concomitant]
     Indication: MEDICAL DIET
     Route: 048
  4. HUMIRA [Suspect]
     Indication: RHEUMATOID ARTHRITIS
     Route: 058
     Dates: start: 20100501
  5. CALCIUM [Concomitant]
     Indication: MINERAL SUPPLEMENTATION
     Route: 048
  6. GABAPENTIN [Concomitant]
     Indication: PRODUCT USED FOR UNKNOWN INDICATION
     Route: 048
  7. OMEPRAZOLE [Concomitant]
     Indication: PROPHYLAXIS
     Route: 048
  8. TRAMADOL HCL [Concomitant]
     Indication: RHEUMATOID ARTHRITIS
     Route: 048

REACTIONS (1)
  - BACK PAIN [None]
